FAERS Safety Report 8499812-7 (Version None)
Quarter: 2012Q3

REPORT INFORMATION
  Report Type: 
  Country: None (occurrence: None)
  Receive Date: 20120710
  Receipt Date: 20120629
  Transmission Date: 20120928
  Serious: Yes (Disabling)
  Sender: FDA-Public Use
  Company Number: GB-SANOFI-AVENTIS-2012SA046785

PATIENT
  Age: 79 Year
  Sex: Female

DRUGS (4)
  1. BENDROFLUMETHIAZIDE [Concomitant]
  2. FEXOFENADINE HYDROCHLORIDE [Suspect]
     Dosage: DOSE :1
     Route: 065
     Dates: start: 20120524
  3. RALOXIFENE HCL [Concomitant]
  4. NEBIVOLOL [Concomitant]

REACTIONS (1)
  - ARRHYTHMIA [None]
